FAERS Safety Report 5099195-9 (Version None)
Quarter: 2006Q3

REPORT INFORMATION
  Report Type: 
  Country: None (occurrence: None)
  Receive Date: 20060728
  Receipt Date: 20060509
  Transmission Date: 20061208
  Serious: No
  Sender: FDA-Public Use
  Company Number: COT_0534_2006

PATIENT
  Age: 47 Year
  Sex: Female
  Weight: 96.6162 kg

DRUGS (5)
  1. VENTAVIS [Suspect]
     Indication: PULMONARY HYPERTENSION
     Dosage: 5 MCG 3X/DAY IH
     Dates: start: 20051116
  2. VENTAVIS [Suspect]
     Indication: PULMONARY HYPERTENSION
     Dosage: 5 MCG 6XD IH
  3. ADVAIR DISKUS 100/50 [Concomitant]
  4. SPIRIVA [Concomitant]
  5. FUROSEMIDE [Concomitant]

REACTIONS (2)
  - MOUTH PLAQUE [None]
  - PHARYNGOLARYNGEAL PAIN [None]
